FAERS Safety Report 10022729 (Version 1)
Quarter: 2014Q1

REPORT INFORMATION
  Report Type: Report from Study
  Country: US (occurrence: US)
  Receive Date: 20140319
  Receipt Date: 20140319
  Transmission Date: 20141002
  Serious: Yes (Other)
  Sender: FDA-Public Use
  Company Number: US-ABBVIE-14P-163-1211225-00

PATIENT
  Age: 55 Year
  Sex: Female
  Weight: 90.8 kg

DRUGS (7)
  1. HUMIRA [Suspect]
     Indication: RHEUMATOID ARTHRITIS
     Dates: start: 201308, end: 201312
  2. HUMIRA [Suspect]
     Dates: start: 201312
  3. UNKNOWN ANESTHESIA [Suspect]
     Indication: SURGERY
  4. PREDNISONE [Concomitant]
     Indication: RHEUMATOID ARTHRITIS
  5. LEFLUNOMIDE [Concomitant]
     Indication: RHEUMATOID ARTHRITIS
  6. EDARBI [Concomitant]
     Indication: HYPERTENSION
  7. MECLIZINE HCL [Concomitant]
     Indication: VERTIGO

REACTIONS (6)
  - Rheumatoid arthritis [Not Recovered/Not Resolved]
  - Meniscus injury [Recovered/Resolved]
  - Joint lock [Recovered/Resolved]
  - Abasia [Recovered/Resolved]
  - Vomiting [Recovered/Resolved]
  - Muscle spasms [Not Recovered/Not Resolved]
